FAERS Safety Report 12960203 (Version 2)
Quarter: 2016Q4

REPORT INFORMATION
  Report Type: Spontaneous
  Country: FR (occurrence: FR)
  Receive Date: 20161121
  Receipt Date: 20161123
  Transmission Date: 20170207
  Serious: Yes (Other)
  Sender: FDA-Public Use
  Company Number: FR-IPSEN BIOPHARMACEUTICALS, INC.-2016-09960

PATIENT
  Age: 43 Year
  Sex: Female

DRUGS (2)
  1. SOMATULINE AUTOGEL [Suspect]
     Active Substance: LANREOTIDE ACETATE
     Indication: OFF LABEL USE
     Dosage: 80MG
     Route: 058
     Dates: start: 201507
  2. SOMATULINE AUTOGEL [Suspect]
     Active Substance: LANREOTIDE ACETATE
     Indication: INTRADUCTAL PAPILLARY-MUCINOUS CARCINOMA OF PANCREAS
     Dosage: 120 MG
     Route: 058
     Dates: start: 201505, end: 201507

REACTIONS (4)
  - Asthenia [Not Recovered/Not Resolved]
  - Off label use [Unknown]
  - Bradycardia [Recovered/Resolved]
  - Incorrect dose administered [Unknown]

NARRATIVE: CASE EVENT DATE: 201507
